FAERS Safety Report 6110932-4 (Version None)
Quarter: 2009Q1

REPORT INFORMATION
  Report Type: 
  Country: None (occurrence: None)
  Receive Date: 20090306
  Receipt Date: 20090223
  Transmission Date: 20090719
  Serious: Yes (Hospitalization, Other)
  Sender: FDA-Public Use
  Company Number: 2009AP000669

PATIENT
  Age: 44 Year
  Sex: Female

DRUGS (5)
  1. RISPERIDONE [Suspect]
     Indication: MOOD SWINGS
  2. ARIPIPRAZOLE [Suspect]
     Indication: BIPOLAR DISORDER
  3. OXCARBAZEPINE [Concomitant]
  4. VENLAFAXINE HCL [Concomitant]
  5. CLONAZEPAM [Concomitant]

REACTIONS (7)
  - BLOOD ALBUMIN INCREASED [None]
  - BLOOD BILIRUBIN DECREASED [None]
  - BLOOD CHLORIDE DECREASED [None]
  - BLOOD SODIUM DECREASED [None]
  - PANCREATITIS ACUTE [None]
  - PROTEIN TOTAL DECREASED [None]
  - WHITE BLOOD CELL COUNT DECREASED [None]
